FAERS Safety Report 20479681 (Version 4)
Quarter: 2022Q1

REPORT INFORMATION
  Report Type: Spontaneous
  Country: IN (occurrence: IN)
  Receive Date: 20220216
  Receipt Date: 20220316
  Transmission Date: 20220423
  Serious: Yes (Hospitalization)
  Sender: FDA-Public Use
  Company Number: IN-PFIZER INC-2021154918

PATIENT
  Age: 73 Year
  Sex: Female

DRUGS (3)
  1. SUTENT [Suspect]
     Active Substance: SUNITINIB MALATE
     Indication: Metastatic renal cell carcinoma
     Dosage: 12.5 MG, 1X/DAY
     Route: 048
     Dates: start: 20200717
  2. SUTENT [Suspect]
     Active Substance: SUNITINIB MALATE
     Dosage: FOR 2 WEEKS ON, 1 WEEK OFF
     Route: 048
     Dates: start: 202102
  3. SUTENT [Suspect]
     Active Substance: SUNITINIB MALATE
     Dosage: FOR 1 WEEK ON, 1 WEEK OFF
     Route: 048
     Dates: start: 202102

REACTIONS (10)
  - Blood creatinine increased [Unknown]
  - Blood pressure increased [Unknown]
  - Blood sodium decreased [Unknown]
  - Disorientation [Unknown]
  - Neoplasm progression [Unknown]
  - Abdominal pain [Unknown]
  - COVID-19 [Unknown]
  - Decreased appetite [Unknown]
  - Dehydration [Unknown]
  - Vomiting [Unknown]

NARRATIVE: CASE EVENT DATE: 20200101
